FAERS Safety Report 5950479-9 (Version None)
Quarter: 2008Q4

REPORT INFORMATION
  Report Type: 
  Country: None (occurrence: None)
  Receive Date: 20081022
  Receipt Date: 20080602
  Transmission Date: 20090506
  Serious: No
  Sender: FDA-Public Use
  Company Number: SPV1-2008-01237

PATIENT
  Age: 22 Year
  Sex: Female
  Weight: 40.8 kg

DRUGS (2)
  1. VYVANSE [Suspect]
     Indication: ATTENTION DEFICIT/HYPERACTIVITY DISORDER
     Dosage: 70 MG, 1X/DAY:QD, ORAL
     Route: 048
     Dates: start: 20080501
  2. ADDERALL 10 [Concomitant]

REACTIONS (3)
  - ACNE [None]
  - PRURITUS [None]
  - RASH [None]
